FAERS Safety Report 14248104 (Version 3)
Quarter: 2018Q1

REPORT INFORMATION
  Report Type: Spontaneous
  Country: BE (occurrence: BE)
  Receive Date: 20171204
  Receipt Date: 20180219
  Transmission Date: 20180508
  Serious: Yes (Other)
  Sender: FDA-Public Use
  Company Number: BE-UCBSA-2017048352

PATIENT
  Age: 24 Year
  Sex: Male

DRUGS (1)
  1. CIMZIA [Suspect]
     Active Substance: CERTOLIZUMAB PEGOL
     Indication: ANKYLOSING SPONDYLITIS
     Dosage: UNK
     Dates: start: 201611, end: 201706

REACTIONS (5)
  - Skin hypertrophy [Unknown]
  - Pain in extremity [Unknown]
  - Eosinophilic fasciitis [Unknown]
  - Pain of skin [Unknown]
  - Muscle fibrosis [Unknown]

NARRATIVE: CASE EVENT DATE: 201706
